FAERS Safety Report 7936466-X (Version None)
Quarter: 2011Q4

REPORT INFORMATION
  Report Type: 
  Country: None (occurrence: None)
  Receive Date: 20111123
  Receipt Date: 20111115
  Transmission Date: 20120403
  Serious: Yes (Hospitalization)
  Sender: FDA-Public Use
  Company Number: FR-NAPPMUNDI-MAG-2011-0001827

PATIENT
  Age: 59 Year
  Sex: Female

DRUGS (6)
  1. OXYCODONE HCL [Suspect]
     Indication: PRODUCT USED FOR UNKNOWN INDICATION
     Dosage: UNK
     Route: 065
  2. FLUOROURACIL [Suspect]
     Indication: NEOPLASM MALIGNANT
     Dosage: 648 MG, DAILY
     Route: 040
     Dates: start: 20110901
  3. FLUOROURACIL [Suspect]
     Dosage: 3888 MG, UNK
     Route: 042
     Dates: start: 20110901, end: 20110903
  4. BRIVANIB ALANINATE [Suspect]
     Indication: NEOPLASM MALIGNANT
     Dosage: 800 MG, UNK
     Route: 048
     Dates: start: 20110818
  5. IRINOTECAN HCL [Suspect]
     Indication: NEOPLASM MALIGNANT
     Dosage: 292 MG, DAILY
     Route: 042
     Dates: start: 20110901, end: 20110901
  6. LEUCOVORIN CALCIUM [Suspect]
     Indication: NEOPLASM MALIGNANT
     Dosage: 648 MG, DAILY
     Route: 042
     Dates: start: 20110901, end: 20110901

REACTIONS (3)
  - DIARRHOEA [None]
  - THROMBOCYTOPENIA [None]
  - VOMITING [None]
